FAERS Safety Report 14824836 (Version 3)
Quarter: 2019Q1

REPORT INFORMATION
  Report Type: Spontaneous
  Country: DE (occurrence: DE)
  Receive Date: 20180430
  Receipt Date: 20190312
  Transmission Date: 20190417
  Serious: Yes (Hospitalization)
  Sender: FDA-Public Use
  Company Number: PHHY2014DE185052

PATIENT
  Age: 45 Year
  Sex: Female
  Weight: 72 kg

DRUGS (26)
  1. TRASTUZUMAB. [Suspect]
     Active Substance: TRASTUZUMAB
     Dosage: 410 MG
     Route: 042
     Dates: start: 20140630, end: 20140630
  2. DOCETAXEL. [Suspect]
     Active Substance: DOCETAXEL
     Dosage: 130 MG, Q3W (LAST DOSE: 16/NOV/2015  )
     Route: 042
     Dates: start: 20140422, end: 20140721
  3. PERTUZUMAB. [Suspect]
     Active Substance: PERTUZUMAB
     Dosage: 420 MG, Q3W (MAINTENANCE DOSE LAST DOSE: 16/NOV/2015)
     Route: 042
     Dates: start: 20140422
  4. TRASTUZUMAB. [Suspect]
     Active Substance: TRASTUZUMAB
     Indication: HER-2 POSITIVE BREAST CANCER
     Dosage: 576 MG
     Route: 042
     Dates: start: 20140331, end: 20140331
  5. QUETIAPINE. [Concomitant]
     Active Substance: QUETIAPINE
     Indication: DEPRESSION
     Dosage: 25 MG, QD
     Route: 048
     Dates: start: 2006
  6. TRASTUZUMAB. [Suspect]
     Active Substance: TRASTUZUMAB
     Dosage: 432 MG,
     Route: 042
     Dates: start: 20140422, end: 20140512
  7. HERCEPTIN [Suspect]
     Active Substance: TRASTUZUMAB
     Indication: HER-2 POSITIVE BREAST CANCER
     Dosage: 576 MG, TOTAL
     Route: 042
     Dates: start: 20140331, end: 20140331
  8. LONQUEX [Concomitant]
     Active Substance: LIPEGFILGRASTIM
     Indication: PROPHYLAXIS
     Dosage: 6 MG, Q3W (6 MG, DAY 2)
     Route: 058
     Dates: start: 20140401, end: 20140722
  9. DOCETAXEL. [Suspect]
     Active Substance: DOCETAXEL
     Dosage: 135 MG, UNK
     Route: 042
     Dates: start: 20140531, end: 20140531
  10. TRASTUZUMAB. [Suspect]
     Active Substance: TRASTUZUMAB
     Dosage: 430 MG
     Route: 042
     Dates: start: 20140721
  11. HERCEPTIN [Suspect]
     Active Substance: TRASTUZUMAB
     Dosage: 430 MG, Q3W
     Route: 042
     Dates: start: 20140604, end: 20140604
  12. HERCEPTIN [Suspect]
     Active Substance: TRASTUZUMAB
     Dosage: 430 MG, Q3W
     Route: 042
     Dates: start: 20140721
  13. RAMIPRIL. [Concomitant]
     Active Substance: RAMIPRIL
     Indication: HYPERTENSION
     Dosage: 5 MG, QD
     Route: 048
     Dates: start: 2011
  14. BISOPROLOL [Concomitant]
     Active Substance: BISOPROLOL
     Indication: HYPERTENSION
     Dosage: 10 MG, QD
     Route: 048
     Dates: start: 2011, end: 20140611
  15. TRASTUZUMAB. [Suspect]
     Active Substance: TRASTUZUMAB
     Dosage: 430 MG
     Route: 042
     Dates: start: 20140604, end: 20140604
  16. PERJETA [Suspect]
     Active Substance: PERTUZUMAB
     Indication: HER-2 POSITIVE BREAST CANCER
     Dosage: 840 MG, TOTAL (LOADING DOSE)
     Route: 042
     Dates: start: 20140331, end: 20140331
  17. DOCETAXEL. [Suspect]
     Active Substance: DOCETAXEL
     Indication: HER-2 POSITIVE BREAST CANCER
     Dosage: 135 MG, Q3W
     Route: 042
     Dates: start: 20140331, end: 20140331
  18. HERCEPTIN [Suspect]
     Active Substance: TRASTUZUMAB
     Dosage: 432 MG, Q3W
     Route: 042
     Dates: start: 20140422, end: 20140512
  19. HERCEPTIN [Suspect]
     Active Substance: TRASTUZUMAB
     Dosage: 410 MG, Q3W
     Route: 042
     Dates: start: 20140630, end: 20140630
  20. VENLAFAXINE [Concomitant]
     Active Substance: VENLAFAXINE HYDROCHLORIDE
     Indication: DEPRESSION
     Dosage: 150 MG, QD
     Route: 048
     Dates: start: 2006
  21. PERTUZUMAB. [Suspect]
     Active Substance: PERTUZUMAB
     Indication: HER-2 POSITIVE BREAST CANCER
     Dosage: 840 MG, QD (LOADING DOSE)
     Route: 042
     Dates: start: 20140331, end: 20140331
  22. PERJETA [Suspect]
     Active Substance: PERTUZUMAB
     Dosage: 420 MG, Q3W (MAINTENANCE DOSE LAST DOSE: 16 NOV 2015)
     Route: 042
     Dates: start: 20140422
  23. MCP [Concomitant]
     Active Substance: METOCLOPRAMIDE HYDROCHLORIDE
     Indication: VOMITING
     Dosage: 180 MG, QD
     Route: 048
     Dates: start: 20140401, end: 20140722
  24. BISOPROLOL [Concomitant]
     Active Substance: BISOPROLOL
     Indication: TACHYCARDIA
     Dosage: 20 MG, QD
     Route: 065
     Dates: start: 20140612
  25. KEVATRIL [Concomitant]
     Active Substance: GRANISETRON HYDROCHLORIDE
     Indication: VOMITING
     Dosage: 1 MG, QD
     Route: 042
     Dates: start: 20140331, end: 20140721
  26. DEXAMETHASON [Concomitant]
     Active Substance: DEXAMETHASONE
     Indication: VOMITING
     Dosage: 16 MG, QD
     Route: 048
     Dates: start: 20140330, end: 20140722

REACTIONS (8)
  - Dizziness [Recovered/Resolved]
  - Nausea [Recovered/Resolved]
  - Mucosal inflammation [Recovered/Resolved]
  - Erysipelas [Recovered/Resolved]
  - Tachycardia [Recovered/Resolved]
  - Vomiting [Recovered/Resolved]
  - Neuropathy peripheral [Recovering/Resolving]
  - General physical health deterioration [Recovering/Resolving]

NARRATIVE: CASE EVENT DATE: 20140403
